FAERS Safety Report 6984416-5 (Version None)
Quarter: 2010Q3

REPORT INFORMATION
  Report Type: 
  Country: None (occurrence: None)
  Receive Date: 20100915
  Receipt Date: 20100903
  Transmission Date: 20110219
  Serious: Yes (Hospitalization)
  Sender: FDA-Public Use
  Company Number: US-WYE-H13406510

PATIENT
  Sex: Male
  Weight: 12.26 kg

DRUGS (1)
  1. PRISTIQ [Suspect]
     Dosage: OVERDOSE AMOUNT 1 TABLET (100 MG)
     Route: 048
     Dates: start: 20100115, end: 20100115

REACTIONS (4)
  - ACCIDENTAL DRUG INTAKE BY CHILD [None]
  - ACCIDENTAL OVERDOSE [None]
  - PRODUCT CONTAINER ISSUE [None]
  - VOMITING [None]
